FAERS Safety Report 6717967 (Version 38)
Quarter: 2014Q2

REPORT INFORMATION
  Report Type: Spontaneous
  Country: US (occurrence: US)
  Receive Date: 20080804
  Receipt Date: 20140519
  Transmission Date: 20141212
  Serious: Yes (Other)
  Sender: FDA-Public Use
  Company Number: PHEH2008US06596

PATIENT
  Sex: Male

DRUGS (59)
  1. AREDIA [Suspect]
     Indication: BONE DISORDER
     Route: 042
     Dates: start: 2001, end: 2002
  2. AREDIA [Suspect]
     Indication: PLASMA CELL MYELOMA
  3. ZOMETA [Suspect]
     Indication: BONE DISORDER
     Route: 042
     Dates: start: 20020606
  4. CRESTOR [Suspect]
  5. FOSAMAX [Suspect]
     Dates: start: 200101, end: 200202
  6. PLAVIX [Concomitant]
  7. TOPROL XL [Concomitant]
  8. LISINOPRIL [Concomitant]
  9. LASIX [Concomitant]
  10. LIPITOR                                 /NET/ [Concomitant]
  11. ASA [Concomitant]
  12. GLUCOVANCE [Concomitant]
  13. MEXITIL [Concomitant]
     Dosage: 150 MG, TID
  14. CELEXA [Concomitant]
     Dosage: 60 MG, QHS
  15. FELDENE [Concomitant]
  16. PLENDIL [Concomitant]
     Dosage: 5 MG, QD
  17. AMITRIPTYLINE [Concomitant]
  18. GLUCOSAMINE [Concomitant]
     Dosage: 500 MG, TID
  19. CELEBREX [Concomitant]
     Dosage: 200 MG, QD
  20. ASPIRIN [Concomitant]
     Dosage: 81 MG, QD
     Route: 048
  21. AMOXICILLIN [Concomitant]
     Dosage: 500 MG, QD
     Route: 048
  22. LANSOPRAZOLE [Concomitant]
     Dosage: 30 MG, QD
     Route: 048
  23. LIPITOR [Concomitant]
     Dosage: 40 MG, QD
     Route: 048
  24. NAPROSYN [Concomitant]
     Dosage: 500 MG, PRN
  25. MULTIVITAMINS [Concomitant]
     Route: 048
  26. FISH OIL [Concomitant]
     Dosage: 1000 MG, QD
  27. BENADRYL [Concomitant]
  28. RANITIDINE [Concomitant]
  29. GLUCOSAMINE SULFATE [Concomitant]
     Dosage: 750 MG, BID
  30. GARLIC [Concomitant]
     Dosage: 500 MG, BID
     Route: 048
  31. METOCLOPRAMIDE [Concomitant]
  32. PROTONIX [Concomitant]
  33. OXYCONTIN [Concomitant]
  34. ZOFRAN [Concomitant]
  35. INSULIN [Concomitant]
  36. KEFLEX [Concomitant]
  37. COREG [Concomitant]
  38. LANTUS [Concomitant]
  39. ALDACTONE [Concomitant]
  40. PLETAL [Concomitant]
  41. GLIPIZIDE [Concomitant]
  42. WELLBUTRIN [Concomitant]
  43. WARFARIN [Concomitant]
  44. ALLOPURINOL [Concomitant]
  45. NEURONTIN [Concomitant]
  46. COUMADINE [Concomitant]
     Dosage: 3 MG QD
  47. MAGNESIUM OXIDE [Concomitant]
     Dosage: 500 MG, QD
  48. PRILOSEC [Concomitant]
     Dosage: 20 MG, QD
  49. JANUVIA [Concomitant]
     Dosage: 100 MG, QD
  50. MILRINONE [Concomitant]
  51. BUDEPRION [Concomitant]
     Dosage: 150 MG, BID
  52. GLYBURIDE [Concomitant]
     Dosage: 5 MG, BID
  53. ROBAXIN [Concomitant]
     Dosage: 750 MG 2 TABLETS QID
  54. TRENTAL ^ALBERT-ROUSSEL^ [Concomitant]
     Dosage: 400 MG, TID
  55. VICODIN [Concomitant]
     Dosage: 500 MG, UNK
  56. CILOSTAZOL [Concomitant]
     Dosage: 2 DF, QD
  57. HYDRALAZINE [Concomitant]
     Dosage: 6.25 MG, TID
  58. IMDUR [Concomitant]
  59. TRAMADOL [Concomitant]

REACTIONS (163)
  - Cardiac arrest [Unknown]
  - Tricuspid valve incompetence [Unknown]
  - Neuropathy peripheral [Unknown]
  - Osteonecrosis of jaw [Unknown]
  - Injury [Unknown]
  - Pain [Unknown]
  - Anxiety [Unknown]
  - Decreased interest [Unknown]
  - Oral cavity fistula [Unknown]
  - Periodontitis [Unknown]
  - Abscess [Unknown]
  - Infection [Unknown]
  - Mastoiditis [Unknown]
  - Osteoporosis [Unknown]
  - Atrial fibrillation [Unknown]
  - Pulmonary embolism [Unknown]
  - Aneurysm [Unknown]
  - Hyperplasia [Unknown]
  - Lymphadenitis [Unknown]
  - Pathological fracture [Unknown]
  - Herpes zoster [Unknown]
  - Bladder cancer [Unknown]
  - Bladder mass [Unknown]
  - Myocardial infarction [Unknown]
  - Bronchitis [Unknown]
  - Mitral valve incompetence [Unknown]
  - Cardiac failure congestive [Unknown]
  - Pulmonary hypertension [Unknown]
  - Dilatation atrial [Unknown]
  - Cardiomyopathy [Unknown]
  - Left ventricular hypertrophy [Unknown]
  - Ejection fraction decreased [Unknown]
  - Dyspnoea [Unknown]
  - Oedema peripheral [Unknown]
  - Scoliosis [Unknown]
  - Spinal osteoarthritis [Unknown]
  - Chronic obstructive pulmonary disease [Unknown]
  - Depression [Unknown]
  - Memory impairment [Unknown]
  - Abdominal pain upper [Unknown]
  - Cholecystitis chronic [Unknown]
  - Cholelithiasis [Unknown]
  - Arrhythmia [Unknown]
  - Bundle branch block right [Unknown]
  - Hiatus hernia [Unknown]
  - Pneumonia [Unknown]
  - Interstitial lung disease [Unknown]
  - Renal failure chronic [Unknown]
  - Haematuria [Unknown]
  - Metabolic syndrome [Unknown]
  - Diabetic nephropathy [Unknown]
  - Intermittent claudication [Unknown]
  - Peripheral arterial occlusive disease [Unknown]
  - Cardiomegaly [Unknown]
  - Visual field defect [Unknown]
  - Cellulitis [Unknown]
  - Large intestine polyp [Unknown]
  - Carotid artery disease [Unknown]
  - Tendon disorder [Unknown]
  - Syncope [Unknown]
  - Alcoholic liver disease [Unknown]
  - Cardiorenal syndrome [Unknown]
  - Cerebrovascular accident [Unknown]
  - Mononeuritis [Unknown]
  - Gallbladder disorder [Unknown]
  - Cartilage atrophy [Unknown]
  - Joint effusion [Unknown]
  - Intervertebral disc protrusion [Unknown]
  - Pulmonary mass [Unknown]
  - Arterial stenosis [Unknown]
  - Hypermagnesaemia [Unknown]
  - Hyponatraemia [Unknown]
  - Paraproteinaemia [Unknown]
  - Cerebral small vessel ischaemic disease [Unknown]
  - Compression fracture [Unknown]
  - Intervertebral disc space narrowing [Unknown]
  - Cataract [Unknown]
  - Vision blurred [Unknown]
  - Atelectasis [Unknown]
  - Gastrooesophageal reflux disease [Unknown]
  - Dyslipidaemia [Unknown]
  - Arthralgia [Unknown]
  - Sinus congestion [Unknown]
  - Seasonal allergy [Unknown]
  - Musculoskeletal pain [Unknown]
  - Back pain [Unknown]
  - Neck pain [Unknown]
  - Haemoptysis [Unknown]
  - Generalised oedema [Unknown]
  - Erectile dysfunction [Unknown]
  - Gout [Unknown]
  - Headache [Unknown]
  - Hyperuricaemia [Unknown]
  - Emphysema [Unknown]
  - Hypoxia [Unknown]
  - Gastrointestinal disorder [Unknown]
  - Pleural effusion [Unknown]
  - Anaemia [Unknown]
  - Pneumothorax [Unknown]
  - Deafness [Unknown]
  - Tinnitus [Unknown]
  - Rhinitis allergic [Unknown]
  - Nasal turbinate hypertrophy [Unknown]
  - Osteosclerosis [Unknown]
  - Sinus disorder [Unknown]
  - Spinal pain [Unknown]
  - Muscle strain [Unknown]
  - Atrophy [Unknown]
  - Arthropathy [Unknown]
  - Ligament disorder [Unknown]
  - Hypertrophy [Unknown]
  - Gait disturbance [Unknown]
  - Tenderness [Unknown]
  - Lumbar spinal stenosis [Unknown]
  - Bursitis [Unknown]
  - Left ventricular dysfunction [Unknown]
  - Acute pulmonary oedema [Unknown]
  - Urinary retention [Unknown]
  - Benign prostatic hyperplasia [Unknown]
  - Orthostatic hypotension [Unknown]
  - Loss of consciousness [Unknown]
  - Acute respiratory failure [Recovering/Resolving]
  - Obesity [Unknown]
  - Peripheral vascular disorder [Unknown]
  - Sinusitis [Unknown]
  - Primary sequestrum [Unknown]
  - Tooth infection [Unknown]
  - Osteomyelitis [Unknown]
  - Osteolysis [Unknown]
  - Diverticulum [Unknown]
  - Femur fracture [Unknown]
  - Osteoarthritis [Unknown]
  - Joint swelling [Unknown]
  - Arteriosclerosis [Unknown]
  - Chest discomfort [Unknown]
  - Rales [Unknown]
  - Paralysis [Unknown]
  - Sinus bradycardia [Unknown]
  - Oropharyngeal pain [Unknown]
  - Aortic arteriosclerosis [Unknown]
  - Aortic stenosis [Unknown]
  - Respiratory distress [Unknown]
  - Dilatation ventricular [Unknown]
  - Pulmonary congestion [Recovering/Resolving]
  - Aortic aneurysm [Unknown]
  - Coagulopathy [Unknown]
  - Drug-induced liver injury [Unknown]
  - Diabetic neuropathy [Unknown]
  - Hypoglycaemia [Unknown]
  - Lung consolidation [Unknown]
  - Fluid overload [Unknown]
  - Atrioventricular block first degree [Unknown]
  - Tobacco abuse [Unknown]
  - Migraine [Unknown]
  - Insomnia [Unknown]
  - Thrombosis [Unknown]
  - Cognitive disorder [Unknown]
  - Confusional state [Unknown]
  - Lung infiltration [Unknown]
  - Faecaloma [Unknown]
  - Diarrhoea [Unknown]
  - Bladder transitional cell carcinoma [Unknown]
  - Second primary malignancy [Unknown]
